FAERS Safety Report 4713348-8 (Version None)
Quarter: 2005Q3

REPORT INFORMATION
  Report Type: 
  Country: None (occurrence: None)
  Receive Date: 20050713
  Receipt Date: 20050708
  Transmission Date: 20060218
  Serious: Yes (Death)
  Sender: FDA-Public Use
  Company Number: ES-GLAXOSMITHKLINE-B0387416A

PATIENT
  Age: 81 Year
  Sex: Male

DRUGS (6)
  1. VENTOLIN [Suspect]
     Indication: CHRONIC OBSTRUCTIVE PULMONARY DISEASE
     Route: 055
     Dates: end: 20050520
  2. FUROSEMIDE [Suspect]
     Dosage: 40MG PER DAY
     Route: 048
     Dates: start: 20050503, end: 20050517
  3. INDAPAMIDE [Suspect]
     Route: 048
     Dates: start: 20050503, end: 20050517
  4. DEXAMETHASONE [Suspect]
     Indication: BRAIN NEOPLASM
     Dosage: 6MG PER DAY
     Route: 048
     Dates: end: 20050520
  5. IPRATROPIUM BROMIDE [Concomitant]
     Indication: CHRONIC OBSTRUCTIVE PULMONARY DISEASE
     Route: 055
     Dates: end: 20050520
  6. SERETIDE [Concomitant]
     Indication: CHRONIC OBSTRUCTIVE PULMONARY DISEASE
     Route: 055
     Dates: end: 20050520

REACTIONS (4)
  - DEATH [None]
  - HYPOKALAEMIA [None]
  - HYPONATRAEMIA [None]
  - RENAL IMPAIRMENT [None]
